FAERS Safety Report 7135433-6 (Version None)
Quarter: 2010Q4

REPORT INFORMATION
  Report Type: 
  Country: None (occurrence: None)
  Receive Date: 20101203
  Receipt Date: 20101122
  Transmission Date: 20110411
  Serious: Yes (Death, Hospitalization)
  Sender: FDA-Public Use
  Company Number: US-CELGENEUS-163-21880-10110037

PATIENT
  Sex: Male

DRUGS (8)
  1. REVLIMID [Suspect]
     Route: 048
     Dates: start: 20101115, end: 20101117
  2. BENDAMUSTINE [Suspect]
     Route: 065
     Dates: start: 20101115
  3. RITUXIMAB [Suspect]
     Route: 065
  4. FLAGYL [Concomitant]
     Route: 065
     Dates: start: 20101117
  5. FLAGYL [Concomitant]
  6. FLUCONAZOLE [Concomitant]
     Indication: PROPHYLAXIS
     Route: 051
     Dates: start: 20101118
  7. MORPHINE [Concomitant]
     Route: 065
     Dates: start: 20101120
  8. OXYGEN [Concomitant]
     Indication: OXYGEN SATURATION DECREASED
     Route: 055
     Dates: start: 20101117

REACTIONS (4)
  - ASTHENIA [None]
  - HYPOTENSION [None]
  - PYREXIA [None]
  - RENAL FAILURE [None]
